FAERS Safety Report 8041939-8 (Version None)
Quarter: 2012Q1

REPORT INFORMATION
  Report Type: 
  Country: None (occurrence: None)
  Receive Date: 20120112
  Receipt Date: 20120106
  Transmission Date: 20120608
  Serious: Yes (Disabling, Other)
  Sender: FDA-Public Use
  Company Number: PHEH2012US000757

PATIENT
  Sex: Male

DRUGS (4)
  1. ANTIHYPERTENSIVE DRUGS [Concomitant]
     Dosage: UNK UKN, UNK
  2. DIOVAN HCT [Suspect]
     Dosage: 1 DF(160/25 MG) QD
     Dates: start: 19990101
  3. DIOVAN [Suspect]
     Dosage: 160 MG, UNK
  4. COUMADIN [Concomitant]
     Dosage: UNK UKN, UNK

REACTIONS (4)
  - EYE HAEMORRHAGE [None]
  - DIZZINESS [None]
  - MACULAR DEGENERATION [None]
  - BLINDNESS [None]
